FAERS Safety Report 25725050 (Version 2)
Quarter: 2025Q3

REPORT INFORMATION
  Report Type: Spontaneous
  Country: EU (occurrence: EU)
  Receive Date: 20250826
  Receipt Date: 20250915
  Transmission Date: 20251020
  Serious: Yes (Other)
  Sender: ALKEM
  Company Number: None

PATIENT
  Age: 84 Year

DRUGS (16)
  1. LINEZOLID [Suspect]
     Active Substance: LINEZOLID
     Indication: Clostridial infection
     Route: 065
  2. LINEZOLID [Suspect]
     Active Substance: LINEZOLID
     Indication: Proteus infection
  3. LINEZOLID [Suspect]
     Active Substance: LINEZOLID
     Indication: Enterococcal infection
  4. LINEZOLID [Suspect]
     Active Substance: LINEZOLID
     Indication: Pseudomonas infection
  5. LINEZOLID [Suspect]
     Active Substance: LINEZOLID
     Indication: Urinary tract infection bacterial
  6. LINEZOLID [Suspect]
     Active Substance: LINEZOLID
     Indication: Superinfection bacterial
  7. LINEZOLID [Suspect]
     Active Substance: LINEZOLID
     Indication: Meningitis bacterial
  8. MEROPENEM [Suspect]
     Active Substance: MEROPENEM
     Indication: Clostridial infection
     Route: 065
  9. MEROPENEM [Suspect]
     Active Substance: MEROPENEM
     Indication: Proteus infection
  10. MEROPENEM [Suspect]
     Active Substance: MEROPENEM
     Indication: Enterococcal infection
  11. MEROPENEM [Suspect]
     Active Substance: MEROPENEM
     Indication: Pseudomonas infection
  12. MEROPENEM [Suspect]
     Active Substance: MEROPENEM
     Indication: Urinary tract infection bacterial
  13. MEROPENEM [Suspect]
     Active Substance: MEROPENEM
     Indication: Superinfection bacterial
  14. MEROPENEM [Suspect]
     Active Substance: MEROPENEM
     Indication: Meningitis bacterial
  15. BACLOFEN [Concomitant]
     Active Substance: BACLOFEN
     Indication: Product used for unknown indication
     Route: 065
  16. INSULIN NOS [Concomitant]
     Active Substance: INSULIN NOS
     Indication: Blood glucose increased
     Route: 065

REACTIONS (1)
  - Acute generalised exanthematous pustulosis [Unknown]
